FAERS Safety Report 10218244 (Version 2)
Quarter: 2014Q2

REPORT INFORMATION
  Report Type: Spontaneous
  Country: US (occurrence: US)
  Receive Date: 20140605
  Receipt Date: 20140625
  Transmission Date: 20141212
  Serious: No
  Sender: FDA-Public Use
  Company Number: US-ASTRAZENECA-2014SE38903

PATIENT
  Age: 73 Year
  Sex: Male
  Weight: 60.3 kg

DRUGS (4)
  1. NEXIUM [Suspect]
     Indication: COLITIS ULCERATIVE
     Route: 048
  2. HYDROCODONE BITARTRATE [Concomitant]
  3. LORTAB [Concomitant]
     Indication: PAIN
  4. LORTAB [Concomitant]
     Indication: PAIN

REACTIONS (3)
  - Colitis ulcerative [Unknown]
  - Pain [Unknown]
  - Off label use [Unknown]
